FAERS Safety Report 4264470-4 (Version None)
Quarter: 2004Q1

REPORT INFORMATION
  Report Type: 
  Country: None (occurrence: None)
  Receive Date: 20040102
  Receipt Date: 20031224
  Transmission Date: 20041129
  Serious: Yes (Hospitalization)
  Sender: FDA-Public Use
  Company Number: EM2003-0394

PATIENT
  Age: 45 Year
  Sex: Male

DRUGS (12)
  1. MACROLIN [Suspect]
     Indication: HIV INFECTION
     Dosage: 4.5 MIU, BID, SUBCUTAN
     Route: 058
     Dates: start: 20031110, end: 20031114
  2. COMBIVIR [Concomitant]
  3. DEPAKENE [Concomitant]
  4. SUBUTEX [Concomitant]
  5. FERROUS SULFATE TAB [Concomitant]
  6. MOTILIUM [Concomitant]
  7. KALETRA [Concomitant]
  8. OMEPRAZOLE [Concomitant]
  9. ACETAMINOPHEN [Concomitant]
  10. VOLTARENE ^CIBA-GEIGY^ (DICLOFENAC SODIUM) [Concomitant]
  11. DUPHALAL [Concomitant]
  12. ATYMIL [Concomitant]

REACTIONS (5)
  - DRUG TOLERANCE DECREASED [None]
  - HYPERSENSITIVITY [None]
  - KERATITIS [None]
  - PURPURA [None]
  - SEBORRHOEIC DERMATITIS [None]
